FAERS Safety Report 15023190 (Version 1)
Quarter: 2018Q2

REPORT INFORMATION
  Report Type: Spontaneous
  Country: GB (occurrence: GB)
  Receive Date: 20180618
  Receipt Date: 20180618
  Transmission Date: 20180711
  Serious: Yes (Death, Hospitalization)
  Sender: FDA-Public Use
  Company Number: GB-FRESENIUS KABI-FK201806926

PATIENT
  Age: 63 Year
  Sex: Male

DRUGS (1)
  1. GEMCITABINE [Suspect]
     Active Substance: GEMCITABINE\GEMCITABINE HYDROCHLORIDE
     Indication: PANCREATIC CARCINOMA
     Dosage: 1000 MG/M2 TO THE NEAREST 38 MG AS 2,100 MG GIVEN ON DAY 1, 8, AND 15 ON A 28-DAY CYCLE FOR 6 CYCLES
     Route: 042

REACTIONS (4)
  - Thrombocytopenia [Unknown]
  - Acute kidney injury [Unknown]
  - Cardiotoxicity [Recovered/Resolved]
  - Anaemia [Unknown]
